FAERS Safety Report 20618298 (Version 1)
Quarter: 2022Q1

REPORT INFORMATION
  Report Type: Spontaneous
  Country: FR (occurrence: FR)
  Receive Date: 20220321
  Receipt Date: 20220321
  Transmission Date: 20220423
  Serious: Yes (Hospitalization, Other)
  Sender: FDA-Public Use
  Company Number: None

PATIENT
  Age: 71 Year
  Sex: Male
  Weight: 60 kg

DRUGS (11)
  1. BEVACIZUMAB [Suspect]
     Active Substance: BEVACIZUMAB
     Indication: Hepatocellular carcinoma
     Dosage: 15 MILLIGRAM/KILOGRAM, Q3WK
     Route: 041
     Dates: start: 202104, end: 20220211
  2. TECENTRIQ [Suspect]
     Active Substance: ATEZOLIZUMAB
     Indication: Hepatocellular carcinoma
     Dosage: 1200 MILLIGRAM, Q3WK
     Route: 041
     Dates: start: 202104, end: 20220211
  3. COVID-19 VACCINE [Concomitant]
     Dosage: UNK (3 DOSES)
  4. METFORMIN\VILDAGLIPTIN [Concomitant]
     Active Substance: METFORMIN\VILDAGLIPTIN
  5. PRAVASTATIN [Concomitant]
     Active Substance: PRAVASTATIN
  6. ATEZOLIZUMAB [Concomitant]
     Active Substance: ATEZOLIZUMAB
  7. ALPRAZOLAM [Concomitant]
     Active Substance: ALPRAZOLAM
  8. IRBESARTAN [Concomitant]
     Active Substance: IRBESARTAN
  9. ESCITALOPRAM [Concomitant]
     Active Substance: ESCITALOPRAM OXALATE
  10. ACETAMINOPHEN [Concomitant]
     Active Substance: ACETAMINOPHEN
  11. IVERMECTIN [Concomitant]
     Active Substance: IVERMECTIN
     Dosage: UNK
     Dates: start: 202201

REACTIONS (6)
  - Interstitial lung disease [Recovering/Resolving]
  - Device related infection [Unknown]
  - Fistula [Unknown]
  - Serratia infection [Unknown]
  - Incision site impaired healing [Unknown]
  - Off label use [Unknown]

NARRATIVE: CASE EVENT DATE: 20210401
